FAERS Safety Report 14298249 (Version 5)
Quarter: 2018Q2

REPORT INFORMATION
  Report Type: Spontaneous
  Country: US (occurrence: US)
  Receive Date: 20171218
  Receipt Date: 20180628
  Transmission Date: 20180711
  Serious: Yes (Hospitalization, Other)
  Sender: FDA-Public Use
  Company Number: US-PFIZER INC-2017534705

PATIENT
  Age: 85 Year
  Sex: Female
  Weight: 53.98 kg

DRUGS (3)
  1. LYRICA [Suspect]
     Active Substance: PREGABALIN
     Indication: DIABETIC NEUROPATHY
     Dosage: 25 MG, TWICE A DAY
     Route: 048
     Dates: start: 2016
  2. LYRICA [Suspect]
     Active Substance: PREGABALIN
     Dosage: UNK, BID
     Route: 048
     Dates: start: 20130614
  3. LYRICA [Suspect]
     Active Substance: PREGABALIN
     Indication: NEUROPATHY PERIPHERAL
     Dosage: UNK

REACTIONS (14)
  - Poor quality sleep [Unknown]
  - Feeling abnormal [Recovering/Resolving]
  - Renal impairment [Not Recovered/Not Resolved]
  - Blood creatinine increased [Recovering/Resolving]
  - Muscular weakness [Unknown]
  - Head injury [Recovered/Resolved]
  - Pulmonary oedema [Not Recovered/Not Resolved]
  - Peripheral swelling [Recovered/Resolved]
  - Malaise [Not Recovered/Not Resolved]
  - Abdominal discomfort [Recovered/Resolved]
  - Asthenia [Recovered/Resolved]
  - Fall [Recovered/Resolved]
  - Weight decreased [Unknown]
  - Clostridium difficile infection [Recovering/Resolving]

NARRATIVE: CASE EVENT DATE: 201702
